FAERS Safety Report 5892061-8 (Version None)
Quarter: 2008Q3

REPORT INFORMATION
  Report Type: 
  Country: None (occurrence: None)
  Receive Date: 20080922
  Receipt Date: 20080915
  Transmission Date: 20090109
  Serious: Yes (Other)
  Sender: FDA-Public Use
  Company Number: DE-B.I. PHARMACEUTICALS,INC./RIDGEFIELD-2008-DE-05428DE

PATIENT
  Sex: Male
  Weight: 70 kg

DRUGS (11)
  1. BUSCOPAN [Suspect]
     Dosage: 10ANZ
     Route: 048
  2. AMPHETAMIN [Suspect]
     Dosage: 500MG
     Route: 048
  3. ARCTUVAN BARENTRAUBENBLATTER EXTRAKT [Suspect]
     Route: 048
  4. CLINDAMYCIN HCL [Suspect]
     Dosage: 6ANZ
     Route: 048
  5. GRIPPOSTAD [Suspect]
     Dosage: 20ANZ
     Route: 048
  6. LOPERAMIDE [Suspect]
     Dosage: 10ANZ
     Route: 048
  7. METOCLOPRAMIDE [Suspect]
     Dosage: 1 BOTTLE
     Route: 048
  8. MELOXICAM [Suspect]
     Dosage: 20ANZ
     Route: 048
  9. OMEPRAZOLE [Suspect]
     Route: 048
  10. VIVINOX SLEEP [Suspect]
     Dosage: 500MG
     Route: 048
  11. VOLTAREN [Suspect]
     Dosage: 5250MG
     Route: 048

REACTIONS (6)
  - DRUG ABUSE [None]
  - HYPOTENSION [None]
  - OVERDOSE [None]
  - SOMNOLENCE [None]
  - SUICIDE ATTEMPT [None]
  - TACHYCARDIA [None]
